FAERS Safety Report 17678502 (Version 2)
Quarter: 2020Q2

REPORT INFORMATION
  Report Type: Spontaneous
  Country: DE (occurrence: DE)
  Receive Date: 20200417
  Receipt Date: 20200428
  Transmission Date: 20200714
  Serious: Yes (Congenital Anomaly)
  Sender: FDA-Public Use
  Company Number: DE-DRREDDYS-GER/GER/20/0121920

PATIENT
  Age: 1 Day
  Sex: Male
  Weight: 4.08 kg

DRUGS (8)
  1. PROCORALAN [Suspect]
     Active Substance: IVABRADINE
     Indication: PRODUCT USED FOR UNKNOWN INDICATION
     Dosage: 15 [MG/D (2 X 7.5 MG/D) ] 2 SEPARATED DOSES
     Route: 064
     Dates: start: 20180706, end: 20180829
  2. L-THYROXIN [Concomitant]
     Active Substance: LEVOTHYROXINE SODIUM
     Indication: PRODUCT USED FOR UNKNOWN INDICATION
     Dosage: 50 [MICROG/D ]
     Route: 064
     Dates: start: 20180706, end: 20190308
  3. VALPROIC ACID. [Concomitant]
     Active Substance: VALPROIC ACID
     Indication: PRODUCT USED FOR UNKNOWN INDICATION
     Dosage: 1500 [MG/D (500-0-1000) ]
     Route: 064
     Dates: start: 20180706, end: 20190308
  4. BISOPROLOL [Suspect]
     Active Substance: BISOPROLOL
     Indication: PRODUCT USED FOR UNKNOWN INDICATION
     Dosage: 10 [MG/D ]
     Route: 064
     Dates: start: 20180706, end: 20180829
  5. LEVOCETIRIZINE [Concomitant]
     Active Substance: LEVOCETIRIZINE
     Indication: PRODUCT USED FOR UNKNOWN INDICATION
     Dosage: 5 [MG/D ]/ ONLY TWO TO THREE TIMES DURING THE ENTIRE PREGNANCY
     Route: 064
     Dates: start: 20180706, end: 20190308
  6. FOLS?URE [Concomitant]
     Indication: PRODUCT USED FOR UNKNOWN INDICATION
     Dosage: 0.8 [MG/D
     Route: 064
     Dates: start: 20180706, end: 20190308
  7. METOPROLOL. [Suspect]
     Active Substance: METOPROLOL
     Indication: PRODUCT USED FOR UNKNOWN INDICATION
     Dosage: 23.75 [MG/D ]
     Route: 064
     Dates: start: 20180830, end: 20190308
  8. BETAMETHASONE. [Concomitant]
     Active Substance: BETAMETHASONE
     Indication: PRODUCT USED FOR UNKNOWN INDICATION
     Dosage: PROBABLY PERIPARTAL
     Route: 064

REACTIONS (6)
  - Large for dates baby [Unknown]
  - Atrial septal defect [Recovered/Resolved]
  - Cleft palate [Not Recovered/Not Resolved]
  - Respiratory disorder neonatal [Recovered/Resolved]
  - Foetal exposure during pregnancy [Unknown]
  - Congenital choroid plexus cyst [Unknown]

NARRATIVE: CASE EVENT DATE: 20190308
